FAERS Safety Report 6384957-8 (Version None)
Quarter: 2009Q4

REPORT INFORMATION
  Report Type: 
  Country: None (occurrence: None)
  Receive Date: 20091002
  Receipt Date: 20090930
  Transmission Date: 20100525
  Serious: Yes (Hospitalization)
  Sender: FDA-Public Use
  Company Number: FR-EISAI INC.-E2020-05277-CLI-FR

PATIENT
  Sex: Male
  Weight: 79 kg

DRUGS (1)
  1. DONEPEZIL/PLACEBO [Suspect]
     Dosage: DOUBLE-BLIND
     Route: 048
     Dates: start: 20090831, end: 20090921

REACTIONS (2)
  - ARRHYTHMIA [None]
  - GASTRIC ULCER HAEMORRHAGE [None]
